FAERS Safety Report 14068286 (Version 1)
Quarter: 2017Q4

REPORT INFORMATION
  Report Type: Spontaneous
  Country: US (occurrence: None)
  Receive Date: 20171010
  Receipt Date: 20171010
  Transmission Date: 20180321
  Serious: Yes (Hospitalization)
  Sender: FDA-Public Use
  Company Number: None

PATIENT
  Age: 39 Year
  Sex: Female

DRUGS (4)
  1. SPIRONOLACT [Concomitant]
     Active Substance: SPIRONOLACTONE
  2. TASIGNA [Concomitant]
     Active Substance: NILOTINIB
  3. VALTREX [Concomitant]
     Active Substance: VALACYCLOVIR HYDROCHLORIDE
  4. SPRYCEL [Suspect]
     Active Substance: DASATINIB
     Indication: CHRONIC MYELOID LEUKAEMIA
     Route: 048
     Dates: start: 20170918

REACTIONS (3)
  - Haematemesis [None]
  - Pyrexia [None]
  - Muscle spasms [None]

NARRATIVE: CASE EVENT DATE: 20170919
